FAERS Safety Report 23098071 (Version 1)
Quarter: 2023Q4

REPORT INFORMATION
  Report Type: Spontaneous
  Country: US (occurrence: None)
  Receive Date: 20231020
  Receipt Date: 20231020
  Transmission Date: 20240109
  Serious: Yes (Other)
  Sender: FDA-Public Use
  Company Number: None

PATIENT
  Age: 75 Year
  Sex: Female

DRUGS (1)
  1. AMBRISENTAN [Suspect]
     Active Substance: AMBRISENTAN

REACTIONS (7)
  - Feeling cold [None]
  - Nasal congestion [None]
  - Dyspnoea [None]
  - Flatulence [None]
  - Eructation [None]
  - Skin discolouration [None]
  - Blood pressure decreased [None]
